FAERS Safety Report 6446635-6 (Version None)
Quarter: 2009Q4

REPORT INFORMATION
  Report Type: 
  Country: None (occurrence: None)
  Receive Date: 20091119
  Receipt Date: 20091113
  Transmission Date: 20100525
  Serious: Yes (Other)
  Sender: FDA-Public Use
  Company Number: A0798610A

PATIENT
  Age: 78 Year
  Sex: Male

DRUGS (2)
  1. AVODART [Suspect]
     Indication: BENIGN PROSTATIC HYPERPLASIA
     Dosage: .5MG PER DAY
     Route: 048
     Dates: start: 20090701, end: 20090701
  2. METOPROLOL [Concomitant]

REACTIONS (3)
  - DIZZINESS [None]
  - PALPITATIONS [None]
  - VERTIGO [None]
